FAERS Safety Report 4756582-3 (Version None)
Quarter: 2005Q3

REPORT INFORMATION
  Report Type: 
  Country: None (occurrence: None)
  Receive Date: 20050830
  Receipt Date: 20050611
  Transmission Date: 20060218
  Serious: Yes (Hospitalization)
  Sender: FDA-Public Use
  Company Number: DE-MERCK-0506DEU00110

PATIENT
  Age: 40 Year
  Sex: Male
  Weight: 72 kg

DRUGS (3)
  1. SINGULAIR [Suspect]
     Indication: ALLERGIC BRONCHITIS
     Route: 048
     Dates: start: 20050418, end: 20050601
  2. SINGULAIR [Suspect]
     Indication: RHINITIS ALLERGIC
     Route: 048
     Dates: start: 20050418, end: 20050601
  3. BUDESONIDE AND FORMOTEROL FUMARATE [Concomitant]
     Route: 055
     Dates: start: 20041201, end: 20050601

REACTIONS (1)
  - ALLERGIC GRANULOMATOUS ANGIITIS [None]
